FAERS Safety Report 10865995 (Version 1)
Quarter: 2015Q1

REPORT INFORMATION
  Report Type: Spontaneous
  Country: JP (occurrence: JP)
  Receive Date: 20150224
  Receipt Date: 20150224
  Transmission Date: 20150721
  Serious: Yes (Death, Hospitalization)
  Sender: FDA-Public Use
  Company Number: PHHY2015JP018709

PATIENT
  Age: 86 Year
  Sex: Male

DRUGS (1)
  1. PRAVASTATIN [Suspect]
     Active Substance: PRAVASTATIN\PRAVASTATIN SODIUM
     Indication: HYPERLIPIDAEMIA
     Dosage: 10 MG, QD FOR 3 YEARS
     Route: 065

REACTIONS (8)
  - Myalgia [Unknown]
  - Ecchymosis [Unknown]
  - Purpura [Unknown]
  - Disseminated intravascular coagulation [Fatal]
  - Skin necrosis [Unknown]
  - Purpura fulminans [Unknown]
  - Back pain [Unknown]
  - Rhabdomyolysis [Unknown]
